FAERS Safety Report 20494031 (Version 2)
Quarter: 2022Q1

REPORT INFORMATION
  Report Type: Spontaneous
  Country: US (occurrence: None)
  Receive Date: 20220221
  Receipt Date: 20220307
  Transmission Date: 20220423
  Serious: No
  Sender: FDA-Public Use
  Company Number: 2022A069833

PATIENT
  Sex: Female
  Weight: 44.9 kg

DRUGS (1)
  1. PULMICORT FLEXHALER [Suspect]
     Active Substance: BUDESONIDE
     Indication: Asthma
     Dosage: 90.0UG UNKNOWN
     Route: 055

REACTIONS (7)
  - Nasopharyngitis [Unknown]
  - Weight decreased [Unknown]
  - Vitamin B1 increased [Unknown]
  - Vitamin A decreased [Unknown]
  - Intentional device misuse [Unknown]
  - Drug dose omission by device [Unknown]
  - Device issue [Unknown]
